FAERS Safety Report 14321374 (Version 2)
Quarter: 2020Q1

REPORT INFORMATION
  Report Type: Report from Study
  Country: US (occurrence: US)
  Receive Date: 20171223
  Receipt Date: 20200108
  Transmission Date: 20200409
  Serious: Yes (Other)
  Sender: FDA-Public Use
  Company Number: US-AMGEN-USASL2017187598

PATIENT
  Age: 50 Year
  Sex: Female

DRUGS (4)
  1. ENBREL [Suspect]
     Active Substance: ETANERCEPT
     Indication: PSORIATIC ARTHROPATHY
     Dosage: 50 MILLIGRAM, QWK
     Route: 065
  2. HUMIRA [Concomitant]
     Active Substance: ADALIMUMAB
     Dosage: UNK
  3. ENBREL [Suspect]
     Active Substance: ETANERCEPT
     Indication: SPONDYLITIS
     Dosage: 50 MILLIGRAM, QWK
     Route: 065
  4. ENBREL [Suspect]
     Active Substance: ETANERCEPT
     Dosage: UNK
     Route: 065
     Dates: start: 2019

REACTIONS (16)
  - Hypertonic bladder [Unknown]
  - Injection site pain [Unknown]
  - Injection site reaction [Unknown]
  - Injection site haemorrhage [Unknown]
  - Therapeutic product effect incomplete [Unknown]
  - Mobility decreased [Unknown]
  - X-ray abnormal [Unknown]
  - Magnetic resonance imaging abnormal [Unknown]
  - Abscess [Unknown]
  - Sinusitis [Unknown]
  - Pain [Unknown]
  - Tonsillectomy [Unknown]
  - Lymphoedema [Unknown]
  - Malaise [Unknown]
  - Infection [Unknown]
  - Drug delivery system malfunction [Unknown]

NARRATIVE: CASE EVENT DATE: 201912
